FAERS Safety Report 7807719-0 (Version None)
Quarter: 2011Q4

REPORT INFORMATION
  Report Type: 
  Country: None (occurrence: None)
  Receive Date: 20111011
  Receipt Date: 20110930
  Transmission Date: 20120403
  Serious: Yes (Hospitalization)
  Sender: FDA-Public Use
  Company Number: US-ACTELION-A-US2011-54930

PATIENT

DRUGS (4)
  1. TRACLEER [Suspect]
     Indication: PULMONARY ARTERIAL HYPERTENSION
     Dosage: UNK MG, UNK
     Route: 048
     Dates: start: 20100528
  2. POTASSIUM [Suspect]
     Dosage: UNK
     Dates: end: 20110801
  3. DIGOXIN [Suspect]
     Dosage: UNK
     Dates: end: 20110801
  4. COUMADIN [Concomitant]

REACTIONS (3)
  - BLOOD POTASSIUM INCREASED [None]
  - TOXICITY TO VARIOUS AGENTS [None]
  - DIALYSIS [None]
